FAERS Safety Report 5152076-4 (Version None)
Quarter: 2006Q4

REPORT INFORMATION
  Report Type: 
  Country: None (occurrence: None)
  Receive Date: 20061113
  Receipt Date: 20061113
  Transmission Date: 20070319
  Serious: Yes (Other)
  Sender: FDA-Public Use
  Company Number: None

PATIENT
  Age: 86 Year
  Sex: Female

DRUGS (5)
  1. CLOPIDOGREL [Suspect]
     Indication: PLATELET AGGREGATION INHIBITION
     Dosage: 75MG DAILY ORALLY
     Route: 048
     Dates: start: 20060905, end: 20060916
  2. VASOTEC [Concomitant]
  3. TOPROL-XL [Concomitant]
  4. NITROGLYCERIN [Concomitant]
  5. RANITIDINE [Concomitant]

REACTIONS (3)
  - DYSPNOEA [None]
  - OEDEMA PERIPHERAL [None]
  - PHARMACEUTICAL PRODUCT COMPLAINT [None]
